FAERS Safety Report 21521801 (Version 1)
Quarter: 2022Q4

REPORT INFORMATION
  Report Type: Spontaneous
  Country: DK (occurrence: DK)
  Receive Date: 20221028
  Receipt Date: 20221028
  Transmission Date: 20230112
  Serious: Yes (Death)
  Sender: FDA-Public Use
  Company Number: None

PATIENT
  Age: 59 Year
  Sex: Female
  Weight: 91 kg

DRUGS (3)
  1. ESCITALOPRAM OXALATE [Suspect]
     Active Substance: ESCITALOPRAM OXALATE
     Indication: Depression
     Dosage: STRENGTH: 5 MG, UNIT DOSE :  15  10 MG, THERAPY END DATE : NASK, FREQUENCY TIME : 1 DAY
     Route: 065
     Dates: start: 20190307
  2. MIRTAZAPINE [Suspect]
     Active Substance: MIRTAZAPINE
     Indication: Depression
     Dosage: 15 MILLIGRAM DAILY; DOSE :15 MG AT NIGHT PN , STRENGTH: 15 MG, UNIT DOSE :  15 MG, THERAPY END DATE
     Route: 065
     Dates: start: 20191018
  3. CHLORPROTHIXENE [Suspect]
     Active Substance: CHLORPROTHIXENE
     Indication: Restlessness
     Dosage: DOSAGE: MAX 3 TIMES A DAY, STRENGTH: 15 MG, UNIT DOSE : 15 MG, THERAPY END DATE : NASK
     Route: 065
     Dates: start: 20150611

REACTIONS (1)
  - Arrhythmia [Fatal]
